FAERS Safety Report 8388256-4 (Version None)
Quarter: 2012Q2

REPORT INFORMATION
  Report Type: 
  Country: None (occurrence: None)
  Receive Date: 20120525
  Receipt Date: 20120522
  Transmission Date: 20120825
  Serious: Yes (Other)
  Sender: FDA-Public Use
  Company Number: BR-PFIZER INC-2012109888

PATIENT
  Sex: Female

DRUGS (2)
  1. DOSTINEX [Suspect]
     Indication: LACTATION INHIBITION THERAPY
     Dosage: 0.5 MG, 1X/DAY
     Route: 048
     Dates: start: 20120503, end: 20120501
  2. BROMOCRIPTINE MESYLATE [Suspect]
     Indication: LACTATION INHIBITION THERAPY
     Dosage: 2.5 MG,EVERY 8 HOURS

REACTIONS (6)
  - LACTATION DISORDER [None]
  - JOINT INJURY [None]
  - DRUG DISPENSING ERROR [None]
  - BREAST ENGORGEMENT [None]
  - LIGAMENT RUPTURE [None]
  - BREAST PAIN [None]
